FAERS Safety Report 17723958 (Version 1)
Quarter: 2020Q2

REPORT INFORMATION
  Report Type: Spontaneous
  Country: US (occurrence: US)
  Receive Date: 20200429
  Receipt Date: 20200429
  Transmission Date: 20200714
  Serious: No
  Sender: FDA-Public Use
  Company Number: US-ANIPHARMA-2019-US-017928

PATIENT
  Age: 83 Year
  Sex: Female
  Weight: 80.74 kg

DRUGS (6)
  1. FELODOPINE [Suspect]
     Active Substance: FELODIPINE
     Dosage: UNK
     Route: 065
     Dates: start: 20180718, end: 20190802
  2. XALATAN [Concomitant]
     Active Substance: LATANOPROST
     Dosage: 1 DROP EACH EYE ONCE A DAY
  3. XALATAN [Suspect]
     Active Substance: LATANOPROST
     Dosage: 1 DROP EACH EYE ONCE A DAY
  4. NO MATCH [Suspect]
     Active Substance: UNSPECIFIED INGREDIENT
     Dosage: UK
     Route: 065
     Dates: start: 20190815
  5. LABETALOL [Suspect]
     Active Substance: LABETALOL\LABETALOL HYDROCHLORIDE
     Dosage: UNK
     Route: 065
     Dates: start: 20190208
  6. ATACAND [Suspect]
     Active Substance: CANDESARTAN CILEXETIL
     Indication: BLOOD PRESSURE MEASUREMENT
     Dosage: UNK
     Route: 065
     Dates: start: 201702, end: 20190731

REACTIONS (3)
  - Throat irritation [Unknown]
  - Unevaluable event [Unknown]
  - Cough [Unknown]
